FAERS Safety Report 6717646-8 (Version None)
Quarter: 2010Q2

REPORT INFORMATION
  Report Type: 
  Country: None (occurrence: None)
  Receive Date: 20100510
  Receipt Date: 20100319
  Transmission Date: 20101027
  Serious: No
  Sender: FDA-Public Use
  Company Number: A0851173A

PATIENT
  Age: 63 Year
  Sex: Female

DRUGS (13)
  1. ALTABAX [Suspect]
     Indication: INFECTION
     Dosage: 1APP SINGLE DOSE
     Route: 061
     Dates: start: 20100319, end: 20100319
  2. TOPROL-XL [Concomitant]
  3. PRINIVIL [Concomitant]
  4. NEXIUM [Concomitant]
  5. ZOCOR [Concomitant]
  6. SYNTHROID [Concomitant]
  7. DEPAKOTE [Concomitant]
  8. ZOLOFT [Concomitant]
  9. PYRIDOXINE HCL [Concomitant]
  10. VITAMIN B-12 [Concomitant]
  11. ZINC [Concomitant]
  12. VITAMIN D [Concomitant]
  13. FOLIC ACID [Concomitant]

REACTIONS (2)
  - APPLICATION SITE PAIN [None]
  - NAUSEA [None]
